FAERS Safety Report 6358100-5 (Version None)
Quarter: 2009Q3

REPORT INFORMATION
  Report Type: 
  Country: None (occurrence: None)
  Receive Date: 20090911
  Receipt Date: 20090829
  Transmission Date: 20100115
  Serious: Yes (Hospitalization)
  Sender: FDA-Public Use
  Company Number: 1-19692502

PATIENT
  Age: 17 Year
  Sex: Female

DRUGS (2)
  1. MINOCYCLINE HCL [Suspect]
     Dosage: 50 MG DAILY, ORAL
     Route: 048
  2. UNSPECIFIED ORAL CONTRACEPTIVE PILL [Concomitant]

REACTIONS (3)
  - AUTOIMMUNE HEPATITIS [None]
  - MALAISE [None]
  - NAUSEA [None]
